FAERS Safety Report 7488199-4 (Version None)
Quarter: 2011Q2

REPORT INFORMATION
  Report Type: 
  Country: None (occurrence: None)
  Receive Date: 20110518
  Receipt Date: 20110511
  Transmission Date: 20111010
  Serious: Yes (Hospitalization)
  Sender: FDA-Public Use
  Company Number: IL-ROCHE-776586

PATIENT
  Sex: Female

DRUGS (2)
  1. BEVACIZUMAB [Suspect]
     Dosage: FREQUENCY: DAY 1, EVERY 3 WEEKS.  LAST DOSE PRIOR TO SAE: 13 SEPTEMBER 2009.
     Route: 042
     Dates: start: 20090208
  2. CAPECITABINE [Suspect]
     Dosage: FREQUENCY: DAYS 1-14, EVERY 3 WEEKS. LAST DOSE PRIOR TO SAE: 15 SEPTEMBER 2009.
     Route: 048
     Dates: start: 20090208

REACTIONS (1)
  - CHOLECYSTITIS ACUTE [None]
